FAERS Safety Report 17810285 (Version 1)
Quarter: 2020Q2

REPORT INFORMATION
  Report Type: Spontaneous
  Country: AU (occurrence: AU)
  Receive Date: 20200521
  Receipt Date: 20200521
  Transmission Date: 20200714
  Serious: Yes (Hospitalization, Other)
  Sender: FDA-Public Use
  Company Number: AU-TAKEDA-2020TUS022594

PATIENT
  Age: 25 Year
  Sex: Female

DRUGS (4)
  1. ABATACEPT [Concomitant]
     Active Substance: ABATACEPT
     Dosage: 2 GRAM, Q4WEEKS
     Route: 042
  2. IMMUNOGLOBULIN HUMAN [Concomitant]
     Active Substance: HUMAN IMMUNOGLOBULIN G
     Indication: IMMUNE SYSTEM DISORDER
     Dosage: 25 GRAM, MONTHLY
     Route: 042
     Dates: start: 2006
  3. ENTYVIO [Suspect]
     Active Substance: VEDOLIZUMAB
     Indication: CTLA4 DEFICIENCY
     Dosage: 300 MILLIGRAM
     Route: 042
  4. VALGANCICLOVIR. [Concomitant]
     Active Substance: VALGANCICLOVIR
     Indication: IMMUNE SYSTEM DISORDER
     Dosage: 1800 MILLIGRAM, QD

REACTIONS (4)
  - Gastric cancer [Unknown]
  - Adenocarcinoma gastric [Unknown]
  - Disease progression [Unknown]
  - Off label use [Unknown]
